FAERS Safety Report 7736304-4 (Version None)
Quarter: 2011Q3

REPORT INFORMATION
  Report Type: 
  Country: None (occurrence: None)
  Receive Date: 20110908
  Receipt Date: 20110829
  Transmission Date: 20111222
  Serious: Yes (Death)
  Sender: FDA-Public Use
  Company Number: AR-GENZYME-CLOF-1001769

PATIENT
  Age: 23 Year
  Sex: Male

DRUGS (5)
  1. VINCRISTINE [Suspect]
     Indication: ADULT T-CELL LYMPHOMA/LEUKAEMIA
     Dosage: INDUCTION (WITH ETOPOSIDE)
     Route: 065
  2. CLOLAR [Suspect]
     Indication: ADULT T-CELL LYMPHOMA/LEUKAEMIA
     Dosage: UNK
     Route: 065
     Dates: start: 20110701
  3. ETOPOSIDE [Suspect]
     Dosage: WITH CLOFARABINE + CYCLOPHOSPHAMIDE
     Route: 065
     Dates: start: 20110701
  4. ETOPOSIDE [Suspect]
     Indication: ADULT T-CELL LYMPHOMA/LEUKAEMIA
     Dosage: INDUCTION (WITH VINCRISTINE)
     Route: 065
  5. CYCLOPHOSPHAMIDE [Suspect]
     Indication: ADULT T-CELL LYMPHOMA/LEUKAEMIA
     Dosage: UNK
     Route: 065
     Dates: start: 20110701

REACTIONS (3)
  - PANCYTOPENIA [None]
  - ADULT T-CELL LYMPHOMA/LEUKAEMIA [None]
  - SEPSIS [None]
